FAERS Safety Report 24775540 (Version 1)
Quarter: 2024Q4

REPORT INFORMATION
  Report Type: Spontaneous
  Country: US (occurrence: US)
  Receive Date: 20241226
  Receipt Date: 20241226
  Transmission Date: 20250114
  Serious: Yes (Hospitalization)
  Sender: SAREPTA THERAPEUTICS
  Company Number: US-SAREPTA THERAPEUTICS INC.-SRP2024-005401

PATIENT
  Age: 17 Year
  Sex: Male

DRUGS (1)
  1. AMONDYS 45 [Suspect]
     Active Substance: CASIMERSEN
     Indication: Product used for unknown indication
     Dosage: 1150 MILLIGRAM, EVERY SEVEN DAYS
     Route: 048

REACTIONS (2)
  - Malnutrition [Unknown]
  - Failure to thrive [Unknown]

NARRATIVE: CASE EVENT DATE: 20241201
